FAERS Safety Report 7689260-1 (Version None)
Quarter: 2011Q3

REPORT INFORMATION
  Report Type: 
  Country: None (occurrence: None)
  Receive Date: 20110811
  Receipt Date: 20110802
  Transmission Date: 20111222
  Serious: Yes (Life-Threatening)
  Sender: FDA-Public Use
  Company Number: 1004426

PATIENT
  Age: 17 Year
  Sex: Male

DRUGS (1)
  1. VINCRISTINE SULFATE [Suspect]
     Indication: T-CELL TYPE ACUTE LEUKAEMIA
     Dosage: INTRATHECAL
     Route: 037

REACTIONS (5)
  - INCORRECT ROUTE OF DRUG ADMINISTRATION [None]
  - ENCEPHALOPATHY [None]
  - DEPRESSION [None]
  - SPINAL CORD INJURY [None]
  - RESPIRATORY FAILURE [None]
